FAERS Safety Report 17661456 (Version 1)
Quarter: 2020Q2

REPORT INFORMATION
  Report Type: Spontaneous
  Country: US (occurrence: US)
  Receive Date: 20200410
  Receipt Date: 20200410
  Transmission Date: 20200713
  Serious: No
  Sender: FDA-Public Use
  Company Number: None

PATIENT
  Age: 56 Year
  Sex: Male

DRUGS (4)
  1. INLYTA [Suspect]
     Active Substance: AXITINIB
     Route: 048
     Dates: start: 20200317
  2. GLIMEPRIDE [Concomitant]
     Active Substance: GLIMEPIRIDE
  3. ATENOLOL. [Concomitant]
     Active Substance: ATENOLOL
  4. METFORMIN ER [Concomitant]
     Active Substance: METFORMIN HYDROCHLORIDE

REACTIONS (2)
  - Hypersensitivity [None]
  - Stomatitis [None]

NARRATIVE: CASE EVENT DATE: 20200410
